FAERS Safety Report 4530628-X (Version None)
Quarter: 2004Q4

REPORT INFORMATION
  Report Type: 
  Country: None (occurrence: None)
  Receive Date: 20041216
  Receipt Date: 20041125
  Transmission Date: 20050328
  Serious: Yes (Hospitalization)
  Sender: FDA-Public Use
  Company Number: JP_041205299

PATIENT
  Age: 6 Year
  Sex: Male

DRUGS (2)
  1. ONCOVIN [Suspect]
     Indication: NON-HODGKIN'S LYMPHOMA STAGE III
     Dates: start: 20030101
  2. DAUNORUBICIN HYDROCHLORIDE [Concomitant]

REACTIONS (5)
  - BINOCULAR EYE MOVEMENT DISORDER [None]
  - CLONUS [None]
  - INAPPROPRIATE ANTIDIURETIC HORMONE SECRETION [None]
  - REVERSIBLE POSTERIOR LEUKOENCEPHALOPATHY SYNDROME [None]
  - SOMNOLENCE [None]
